FAERS Safety Report 26194210 (Version 1)
Quarter: 2025Q4

REPORT INFORMATION
  Report Type: Spontaneous
  Country: GB (occurrence: GB)
  Receive Date: 20251224
  Receipt Date: 20251224
  Transmission Date: 20260118
  Serious: Yes (Other)
  Sender: ORGANON
  Company Number: None

PATIENT
  Age: 70 Year
  Sex: Female
  Weight: 63 kg

DRUGS (7)
  1. EZETIMIBE [Suspect]
     Active Substance: EZETIMIBE
     Dosage: 10 MILLIGRAM, QD
     Dates: start: 20251013
  2. FLUTICASONE PROPIONATE [Concomitant]
     Active Substance: FLUTICASONE PROPIONATE
     Indication: Ill-defined disorder
     Dosage: TWO PUFFS ONCE DAILY
     Dates: start: 20240602
  3. COCODAMOL [Concomitant]
     Active Substance: ACETAMINOPHEN\CODEINE PHOSPHATE
     Indication: Ill-defined disorder
     Dosage: TAKE 2 TABLETS 4 TIMES/DAY AS REQUIRED FOR PAIN...
     Dates: start: 20241120
  4. XAILIN NIGHT [Concomitant]
     Indication: Ill-defined disorder
     Dosage: USE TO THE AFFECTED EYE AT NIGHT
  5. LANOLIN\LIGHT MINERAL OIL\PARAFFIN [Concomitant]
     Active Substance: LANOLIN\LIGHT MINERAL OIL\PARAFFIN
     Indication: Ill-defined disorder
     Dosage: APPLY FREQUENTLY
  6. SYSTANE (HYPROMELLOSE 2910 (4000 MPA.S)) [Concomitant]
     Active Substance: HYPROMELLOSE 2910 (4000 MPA.S)
     Indication: Ill-defined disorder
     Dosage: USE AS DIRECTED
     Dates: start: 20250604
  7. ROSUVASTATIN [Concomitant]
     Active Substance: ROSUVASTATIN
     Indication: Ill-defined disorder
     Dosage: TAKE ONE WEEKLY, INCREASE DOSE GRADUALLY EVERY ...
     Dates: start: 20250604, end: 20251013

REACTIONS (3)
  - Pain in extremity [Recovered/Resolved]
  - Musculoskeletal pain [Recovered/Resolved]
  - Headache [Recovered/Resolved]
